FAERS Safety Report 6269441-4 (Version None)
Quarter: 2009Q3

REPORT INFORMATION
  Report Type: 
  Country: None (occurrence: None)
  Receive Date: 20090715
  Receipt Date: 20090622
  Transmission Date: 20100115
  Serious: No
  Sender: FDA-Public Use
  Company Number: US-BAYER-200911928BCC

PATIENT
  Age: 72 Year
  Sex: Female
  Weight: 91 kg

DRUGS (6)
  1. ALEVE [Suspect]
     Indication: OSTEOARTHRITIS
     Route: 048
     Dates: start: 20090601, end: 20090601
  2. ALEVE (CAPLET) [Suspect]
     Indication: OSTEOARTHRITIS
     Route: 048
     Dates: start: 20090601
  3. HYDROCHLOROTHIAZIDE [Concomitant]
     Route: 065
  4. RAMIPRIL [Concomitant]
     Route: 065
  5. CENTRUM SILVER [Concomitant]
     Route: 065
  6. OSCAL + D [Concomitant]
     Route: 065

REACTIONS (1)
  - DIZZINESS [None]
